FAERS Safety Report 25342496 (Version 3)
Quarter: 2025Q3

REPORT INFORMATION
  Report Type: Spontaneous
  Country: US (occurrence: US)
  Receive Date: 20250521
  Receipt Date: 20250820
  Transmission Date: 20251021
  Serious: No
  Sender: CATALYST PHARMA
  Company Number: US-CATALYST PHARMACEUTICALS-US-CATA-25-00333

PATIENT
  Age: 11 Year
  Sex: Male
  Weight: 49.692 kg

DRUGS (5)
  1. AGAMREE [Suspect]
     Active Substance: VAMOROLONE
     Indication: Duchenne muscular dystrophy
     Dosage: 6.8 ML ONCE DAILY
     Route: 048
     Dates: start: 20241218
  2. ENALAPRIL [Concomitant]
     Active Substance: ENALAPRIL
     Indication: Cardiovascular event prophylaxis
     Dosage: 5 ML TWICE DAILY
     Route: 065
  3. QUILLIVANT EXTENDED-RELEASE [Concomitant]
     Indication: Autism spectrum disorder
     Dosage: 10 ML ONCE A DAY
     Route: 048
     Dates: start: 2023
  4. QUILLIVANT EXTENDED-RELEASE [Concomitant]
     Indication: Attention deficit hyperactivity disorder
  5. QUILLIVANT EXTENDED-RELEASE [Concomitant]
     Indication: Increased appetite

REACTIONS (8)
  - Peripheral swelling [Not Recovered/Not Resolved]
  - Condition aggravated [Not Recovered/Not Resolved]
  - Weight increased [Not Recovered/Not Resolved]
  - Increased appetite [Not Recovered/Not Resolved]
  - Cushingoid [Not Recovered/Not Resolved]
  - Influenza like illness [Recovered/Resolved]
  - Gastroenteritis viral [Recovered/Resolved]
  - Product dose omission issue [Recovered/Resolved]

NARRATIVE: CASE EVENT DATE: 20250201
